FAERS Safety Report 5327637-X (Version None)
Quarter: 2007Q2

REPORT INFORMATION
  Report Type: 
  Country: None (occurrence: None)
  Receive Date: 20070517
  Receipt Date: 20070515
  Transmission Date: 20071010
  Serious: Yes (Other)
  Sender: FDA-Public Use
  Company Number: A0651408A

PATIENT
  Age: 80 Year
  Sex: Male

DRUGS (13)
  1. AVANDIA [Suspect]
     Indication: DIABETES MELLITUS NON-INSULIN-DEPENDENT
     Dosage: 4MG PER DAY
     Route: 048
     Dates: start: 20070514, end: 20070515
  2. AMARYL [Concomitant]
  3. AMITRIPTYLINE HCL [Concomitant]
  4. ASA BABY [Concomitant]
  5. CAPTOPRIL [Concomitant]
  6. SULINDAC [Concomitant]
  7. FISH OIL [Concomitant]
  8. FOLIC ACID [Concomitant]
  9. GLUCOSAMINE SULFATE [Concomitant]
  10. KLOR-CON [Concomitant]
  11. NIASPAN [Concomitant]
  12. ZYRTEC [Concomitant]
  13. TRICOR [Concomitant]

REACTIONS (1)
  - FAECAL INCONTINENCE [None]
